FAERS Safety Report 8290474-0 (Version None)
Quarter: 2012Q2

REPORT INFORMATION
  Report Type: 
  Country: None (occurrence: None)
  Receive Date: 20120417
  Receipt Date: 20110422
  Transmission Date: 20120825
  Serious: No
  Sender: FDA-Public Use
  Company Number: US-ASTRAZENECA-2011SE23517

PATIENT
  Age: 88 Year
  Sex: Female

DRUGS (3)
  1. NEXIUM [Suspect]
     Route: 048
  2. CRESTOR [Suspect]
     Route: 048
  3. HYDROCODONE [Concomitant]

REACTIONS (3)
  - NEURALGIA [None]
  - NERVE COMPRESSION [None]
  - ARTHRITIS [None]
